FAERS Safety Report 14355805 (Version 1)
Quarter: 2018Q1

REPORT INFORMATION
  Report Type: Spontaneous
  Country: CN (occurrence: CN)
  Receive Date: 20180105
  Receipt Date: 20180105
  Transmission Date: 20180509
  Serious: Yes (Hospitalization)
  Sender: FDA-Public Use
  Company Number: CN-ROCHE-2050961

PATIENT
  Sex: Male
  Weight: 70 kg

DRUGS (2)
  1. ALTEPLASE. [Suspect]
     Active Substance: ALTEPLASE
     Indication: THROMBOLYSIS
     Route: 042
     Dates: start: 20171109
  2. ASPIRIN. [Concomitant]
     Active Substance: ASPIRIN
     Route: 065
     Dates: start: 20171110, end: 20171113

REACTIONS (2)
  - Vitreous haemorrhage [Unknown]
  - Retinal detachment [Unknown]
